FAERS Safety Report 22175617 (Version 1)
Quarter: 2023Q2

REPORT INFORMATION
  Report Type: Spontaneous
  Country: US (occurrence: US)
  Receive Date: 20230405
  Receipt Date: 20230405
  Transmission Date: 20230721
  Serious: No
  Sender: FDA-Public Use
  Company Number: US-TAKEDA-2023TUS031740

PATIENT
  Sex: Female
  Weight: 61 kg

DRUGS (4)
  1. ROZEREM [Suspect]
     Active Substance: RAMELTEON
     Indication: Sleep disorder
     Dosage: UNK
     Route: 065
  2. ALDACTONE [Concomitant]
     Active Substance: SPIRONOLACTONE
     Dosage: UNK
  3. METOPROLOL [Concomitant]
     Active Substance: METOPROLOL
     Dosage: UNK
  4. LOSARTAN [Concomitant]
     Active Substance: LOSARTAN
     Dosage: UNK

REACTIONS (3)
  - Abdominal pain upper [Unknown]
  - Headache [Unknown]
  - Nausea [Unknown]
